FAERS Safety Report 6686046-1 (Version None)
Quarter: 2010Q2

REPORT INFORMATION
  Report Type: 
  Country: None (occurrence: None)
  Receive Date: 20100419
  Receipt Date: 20100415
  Transmission Date: 20101027
  Serious: Yes (Other)
  Sender: FDA-Public Use
  Company Number: JP-SANOFI-AVENTIS-200610826JP

PATIENT
  Age: 36 Year
  Sex: Female
  Weight: 50 kg

DRUGS (17)
  1. LEFLUNOMIDE [Suspect]
     Indication: RHEUMATOID ARTHRITIS
     Route: 048
     Dates: start: 20031029, end: 20031031
  2. LEFLUNOMIDE [Suspect]
     Route: 048
     Dates: start: 20031101, end: 20031222
  3. LEFLUNOMIDE [Suspect]
     Route: 048
     Dates: start: 20031223, end: 20040105
  4. QUESTRAN [Suspect]
     Indication: DRUG DETOXIFICATION
     Route: 048
     Dates: start: 20040203, end: 20040223
  5. LOXONIN [Concomitant]
     Indication: RHEUMATOID ARTHRITIS
     Dosage: DOSE UNIT: 60 MG
     Route: 048
     Dates: start: 20030902, end: 20040118
  6. LOXONIN [Concomitant]
     Dosage: DOSE UNIT: 60 MG
     Route: 048
     Dates: start: 20040120, end: 20040223
  7. MUCOSTA [Concomitant]
     Indication: GASTROINTESTINAL DISORDER
     Dosage: DOSE UNIT: 100 MG
     Route: 048
     Dates: start: 20030930, end: 20040118
  8. MUCOSTA [Concomitant]
     Dosage: DOSE UNIT: 100 MG
     Route: 048
     Dates: start: 20040120, end: 20040223
  9. BACILLUS SUBTILIS/LACTOBACILLUS ACIDOPHILUS/STREPTOCOCCUS FAECALIS [Concomitant]
     Indication: CONSTIPATION
     Route: 048
     Dates: start: 20031111, end: 20040104
  10. MAGLAX [Concomitant]
     Indication: CONSTIPATION
     Dosage: DOSE UNIT: 330 MG
     Route: 048
     Dates: start: 20031111, end: 20031117
  11. LOPEMIN [Concomitant]
     Indication: CONSTIPATION
     Route: 048
     Dates: start: 20031111, end: 20031117
  12. OPIUM ALKALOIDS AND DERIVATIVES [Concomitant]
     Dosage: DOSE UNIT: 15 MG
     Route: 048
     Dates: start: 20031125, end: 20031208
  13. OPIUM ALKALOIDS AND DERIVATIVES [Concomitant]
     Dosage: DOSE UNIT: 15 MG
     Route: 048
     Dates: start: 20031125, end: 20031208
  14. MUCODYNE [Concomitant]
     Route: 048
     Dates: start: 20031125, end: 20031208
  15. MUCODYNE [Concomitant]
     Route: 048
     Dates: start: 20031125, end: 20031208
  16. PREDNISOLONE [Concomitant]
     Indication: RHEUMATOID ARTHRITIS
     Route: 048
     Dates: start: 20040203, end: 20040223
  17. PREDNISOLONE [Concomitant]
     Route: 048
     Dates: start: 20040120, end: 20040122

REACTIONS (7)
  - ALANINE AMINOTRANSFERASE INCREASED [None]
  - ASPARTATE AMINOTRANSFERASE INCREASED [None]
  - CONSTIPATION [None]
  - ENTERITIS [None]
  - GAMMA-GLUTAMYLTRANSFERASE INCREASED [None]
  - LIVER DISORDER [None]
  - NASOPHARYNGITIS [None]
